FAERS Safety Report 21748540 (Version 1)
Quarter: 2022Q4

REPORT INFORMATION
  Report Type: Spontaneous
  Country: US (occurrence: None)
  Receive Date: 20221218
  Receipt Date: 20221218
  Transmission Date: 20230113
  Serious: Yes (Other)
  Sender: FDA-Public Use
  Company Number: None

PATIENT
  Age: 13 Year
  Sex: Female
  Weight: 39.15 kg

DRUGS (2)
  1. METHYLPHENIDATE HYDROCHLORIDE [Suspect]
     Active Substance: METHYLPHENIDATE HYDROCHLORIDE
     Indication: Attention deficit hyperactivity disorder
     Dosage: OTHER QUANTITY : 30 TABLET(S);?
     Route: 048
     Dates: start: 20221122, end: 20221206
  2. CALCIUM [Concomitant]
     Active Substance: CALCIUM

REACTIONS (7)
  - Agitation [None]
  - Educational problem [None]
  - Crying [None]
  - Manufacturing issue [None]
  - Product quality issue [None]
  - Attention deficit hyperactivity disorder [None]
  - Condition aggravated [None]

NARRATIVE: CASE EVENT DATE: 20221123
